FAERS Safety Report 18469719 (Version 1)
Quarter: 2020Q4

REPORT INFORMATION
  Report Type: Spontaneous
  Country: CA (occurrence: CA)
  Receive Date: 20201105
  Receipt Date: 20201105
  Transmission Date: 20210114
  Serious: Yes (Other)
  Sender: FDA-Public Use
  Company Number: CA-PURDUE-USA-2020-0174957

PATIENT
  Sex: Male

DRUGS (1)
  1. BIPHENTIN [Suspect]
     Active Substance: METHYLPHENIDATE
     Indication: PRODUCT USED FOR UNKNOWN INDICATION
     Dosage: 50 MG, DAILY
     Route: 065

REACTIONS (8)
  - Hypervigilance [Unknown]
  - Muscular weakness [Unknown]
  - Depression [Unknown]
  - Paranoia [Unknown]
  - Fatigue [Unknown]
  - Disturbance in attention [Unknown]
  - Drug ineffective [Unknown]
  - Anxiety [Unknown]
